FAERS Safety Report 22541626 (Version 1)
Quarter: 2023Q2

REPORT INFORMATION
  Report Type: Spontaneous
  Country: US (occurrence: None)
  Receive Date: 20230608
  Receipt Date: 20230608
  Transmission Date: 20230721
  Serious: Yes (Life-Threatening, Other)
  Sender: FDA-Public Use
  Company Number: None

PATIENT
  Age: 80 Year
  Sex: Male

DRUGS (1)
  1. SUNITINIB [Suspect]
     Active Substance: SUNITINIB
     Indication: Gastrointestinal carcinoma
     Dosage: FREQUENCY : DAILY;?
     Route: 048
     Dates: start: 20230523, end: 20230606

REACTIONS (4)
  - Dyspnoea [None]
  - Pyrexia [None]
  - Chills [None]
  - Night sweats [None]

NARRATIVE: CASE EVENT DATE: 20230605
